FAERS Safety Report 6344665-6 (Version None)
Quarter: 2009Q3

REPORT INFORMATION
  Report Type: 
  Country: None (occurrence: None)
  Receive Date: 20090908
  Receipt Date: 20090625
  Transmission Date: 20100115
  Serious: Yes (Hospitalization)
  Sender: FDA-Public Use
  Company Number: FR-GENENTECH-282741

PATIENT
  Sex: Female

DRUGS (9)
  1. RITUXIMAB [Suspect]
     Indication: CHRONIC LYMPHOCYTIC LEUKAEMIA
     Dosage: 920 MG, QD
     Route: 041
     Dates: start: 20080901, end: 20081231
  2. ENDOXAN [Suspect]
     Indication: NEOPLASM MALIGNANT
     Dosage: 450 MG, QD
     Route: 002
     Dates: start: 20080902, end: 20090102
  3. FLUDARA [Suspect]
     Indication: CHRONIC LYMPHOCYTIC LEUKAEMIA
     Dosage: 70 MG, QD
     Route: 002
     Dates: start: 20080902, end: 20090102
  4. ATARAX [Concomitant]
     Indication: DRUG USE FOR UNKNOWN INDICATION
  5. BACTRIM [Concomitant]
     Indication: DRUG USE FOR UNKNOWN INDICATION
  6. ZELITREX [Concomitant]
     Indication: DRUG USE FOR UNKNOWN INDICATION
  7. TIENAM [Concomitant]
     Indication: DRUG USE FOR UNKNOWN INDICATION
     Dosage: UNK
     Dates: start: 20081106, end: 20081118
  8. KENZEN [Concomitant]
     Indication: DRUG USE FOR UNKNOWN INDICATION
  9. PENTACARINAT [Concomitant]
     Indication: DRUG USE FOR UNKNOWN INDICATION
     Dosage: UNK
     Dates: start: 20081117, end: 20081117

REACTIONS (4)
  - ANAEMIA [None]
  - CYTOMEGALOVIRUS TEST POSITIVE [None]
  - FEBRILE BONE MARROW APLASIA [None]
  - PYREXIA [None]
